FAERS Safety Report 9015759 (Version 1)
Quarter: 2013Q1

REPORT INFORMATION
  Report Type: Spontaneous
  Country: US (occurrence: US)
  Receive Date: 20130116
  Receipt Date: 20130116
  Transmission Date: 20140127
  Serious: Yes (Hospitalization, Other)
  Sender: FDA-Public Use
  Company Number: US-ASTRAZENECA-2013SE01289

PATIENT
  Sex: Female

DRUGS (1)
  1. NEXIUM [Suspect]
     Indication: DYSPEPSIA
     Route: 048
     Dates: start: 2005

REACTIONS (3)
  - Small intestinal obstruction [Unknown]
  - Gastrointestinal ulcer haemorrhage [Unknown]
  - Gastrointestinal haemorrhage [Unknown]
